FAERS Safety Report 22383377 (Version 1)
Quarter: 2023Q2

REPORT INFORMATION
  Report Type: Spontaneous
  Country: IN (occurrence: IN)
  Receive Date: 20230530
  Receipt Date: 20230530
  Transmission Date: 20230722
  Serious: Yes (Death, Life-Threatening, Hospitalization, Other)
  Sender: FDA-Public Use
  Company Number: IN-PFIZER INC-202300200056

PATIENT
  Age: 70 Year
  Sex: Male

DRUGS (9)
  1. VORICONAZOLE [Suspect]
     Active Substance: VORICONAZOLE
     Indication: Infective keratitis
     Dosage: 200 MG, 2X/DAY
     Route: 048
  2. VORICONAZOLE [Suspect]
     Active Substance: VORICONAZOLE
     Indication: Infective keratitis
     Dosage: 4 MG/KG, 2X/DAY
     Route: 042
  3. CASPOFUNGIN [Suspect]
     Active Substance: CASPOFUNGIN
     Indication: Thrombophlebitis
     Dosage: 50 MG, DAILY, INFUSION
     Route: 042
  4. ITRACONAZOLE [Suspect]
     Active Substance: ITRACONAZOLE
     Indication: Thrombophlebitis
     Dosage: 200 MG, 2X/DAY
     Route: 048
  5. CEFAZOLIN SODIUM [Concomitant]
     Active Substance: CEFAZOLIN SODIUM
     Indication: Infective keratitis
     Dosage: UNK
     Route: 061
  6. NATAMYCIN [Concomitant]
     Active Substance: NATAMYCIN
     Indication: Infective keratitis
     Dosage: UNK
     Route: 061
  7. TOBRAMYCIN SULFATE [Concomitant]
     Active Substance: TOBRAMYCIN SULFATE
     Indication: Infective keratitis
     Dosage: UNK
     Route: 061
  8. CEFTRIAXONE [Concomitant]
     Active Substance: CEFTRIAXONE
     Indication: Panophthalmitis
     Dosage: 100 MG/KG, IN 2 DIVIDED DOSES
     Route: 042
  9. VANCOMYCIN [Concomitant]
     Active Substance: VANCOMYCIN
     Indication: Panophthalmitis
     Dosage: 40 MG/KG, IN 2 DIVIDED DOSES
     Route: 042

REACTIONS (1)
  - Thrombophlebitis [Fatal]
